FAERS Safety Report 16667327 (Version 1)
Quarter: 2019Q3

REPORT INFORMATION
  Report Type: Spontaneous
  Country: JP (occurrence: JP)
  Receive Date: 20190805
  Receipt Date: 20190805
  Transmission Date: 20191004
  Serious: Yes (Other)
  Sender: FDA-Public Use
  Company Number: JP-PFIZER INC-2019323252

PATIENT

DRUGS (2)
  1. LYRICA [Suspect]
     Active Substance: PREGABALIN
     Dosage: 300 MG, DAILY
     Route: 048
  2. LYRICA [Suspect]
     Active Substance: PREGABALIN
     Dosage: INITIAL DOSAGE
     Route: 048

REACTIONS (4)
  - Malaise [Unknown]
  - Insomnia [Unknown]
  - Withdrawal syndrome [Unknown]
  - Creatinine renal clearance abnormal [Unknown]
